FAERS Safety Report 11558419 (Version 1)
Quarter: 2015Q3

REPORT INFORMATION
  Report Type: Spontaneous
  Country: US (occurrence: US)
  Receive Date: 20150928
  Receipt Date: 20150928
  Transmission Date: 20151125
  Serious: No
  Sender: FDA-Public Use
  Company Number: US-PFIZER INC-2015317208

PATIENT
  Sex: Female

DRUGS (1)
  1. LYRICA [Suspect]
     Active Substance: PREGABALIN
     Dosage: 100 MG, UNK
     Dates: start: 20150916

REACTIONS (6)
  - Dizziness [Unknown]
  - Dysgraphia [Unknown]
  - Feeling abnormal [Unknown]
  - Fall [Unknown]
  - Chest pain [Unknown]
  - Feeling drunk [Unknown]
